FAERS Safety Report 7795182-8 (Version None)
Quarter: 2011Q3

REPORT INFORMATION
  Report Type: 
  Country: None (occurrence: None)
  Receive Date: 20110930
  Receipt Date: 20110919
  Transmission Date: 20111222
  Serious: Yes (Other)
  Sender: FDA-Public Use
  Company Number: 2011AT000353

PATIENT
  Age: 40 Year
  Sex: Male

DRUGS (3)
  1. GROWTH HORMONE (NO PREF. NAME) [Suspect]
     Indication: MUSCLE BUILDING THERAPY
  2. TESTOSTERONE [Suspect]
     Indication: MUSCLE BUILDING THERAPY
  3. NANDROLONE DECANOATE [Suspect]
     Indication: MUSCLE BUILDING THERAPY

REACTIONS (8)
  - BLOOD FOLLICLE STIMULATING HORMONE DECREASED [None]
  - BLOOD TESTOSTERONE DECREASED [None]
  - TESTICULAR ATROPHY [None]
  - AZOOSPERMIA [None]
  - HYPOTHALAMO-PITUITARY DISORDER [None]
  - BLOOD LUTEINISING HORMONE DECREASED [None]
  - LIBIDO DECREASED [None]
  - ERECTILE DYSFUNCTION [None]
